FAERS Safety Report 21685193 (Version 1)
Quarter: 2022Q4

REPORT INFORMATION
  Report Type: Report from Study
  Country: US (occurrence: US)
  Receive Date: 20221206
  Receipt Date: 20221206
  Transmission Date: 20230112
  Serious: Yes (Other)
  Sender: FDA-Public Use
  Company Number: US-UCBSA-2022025948

PATIENT
  Sex: Male

DRUGS (2)
  1. ROTIGOTINE [Suspect]
     Active Substance: ROTIGOTINE
     Indication: Restless legs syndrome
     Dosage: 8MG DAILY
     Route: 062
     Dates: start: 2019
  2. ROTIGOTINE [Suspect]
     Active Substance: ROTIGOTINE
     Indication: Parkinson^s disease

REACTIONS (3)
  - Parkinson^s disease [Not Recovered/Not Resolved]
  - Therapy interrupted [Unknown]
  - Overdose [Unknown]

NARRATIVE: CASE EVENT DATE: 20190101
